FAERS Safety Report 6038852-4 (Version None)
Quarter: 2009Q1

REPORT INFORMATION
  Report Type: 
  Country: None (occurrence: None)
  Receive Date: 20090115
  Receipt Date: 20090107
  Transmission Date: 20090719
  Serious: Yes (Death)
  Sender: FDA-Public Use
  Company Number: US-EISAI MEDICAL RESEARCH-E2020-03935-SPO-US

PATIENT
  Sex: Female

DRUGS (6)
  1. ARICEPT [Suspect]
     Indication: DEMENTIA ALZHEIMER'S TYPE
     Route: 048
     Dates: start: 20080101
  2. NAMENDA [Concomitant]
  3. SYNTHROID [Concomitant]
  4. MEGESTROL ACETATE [Concomitant]
  5. FLECCAINIDE [Concomitant]
  6. LORAZEPAM [Concomitant]

REACTIONS (1)
  - LOBAR PNEUMONIA [None]
